FAERS Safety Report 6941341-3 (Version None)
Quarter: 2010Q3

REPORT INFORMATION
  Report Type: 
  Country: None (occurrence: None)
  Receive Date: 20100825
  Receipt Date: 20100817
  Transmission Date: 20110219
  Serious: Yes (Hospitalization)
  Sender: FDA-Public Use
  Company Number: JP-CEPHALON-2010004497

PATIENT
  Sex: Male

DRUGS (8)
  1. TREANDA [Suspect]
     Indication: DIFFUSE LARGE B-CELL LYMPHOMA REFRACTORY
     Route: 042
     Dates: start: 20100419, end: 20100804
  2. RITUXIMAB [Suspect]
     Indication: DIFFUSE LARGE B-CELL LYMPHOMA REFRACTORY
     Route: 041
     Dates: start: 20100419, end: 20100802
  3. POVIDONE IODINE [Concomitant]
     Dates: end: 20100815
  4. FAMOTIDINE [Concomitant]
     Dates: start: 20100419, end: 20100815
  5. REBAMIPIDE [Concomitant]
     Dates: start: 20100419, end: 20100815
  6. SULFAMETHOXAZOLE AND TRIMETHOPRIM [Concomitant]
     Dates: start: 20100419, end: 20100815
  7. ACYCLOVIR SODIUM [Concomitant]
     Dates: start: 20100419, end: 20100815
  8. URSODIOL [Concomitant]
     Dates: start: 20100712, end: 20100815

REACTIONS (1)
  - CYTOMEGALOVIRUS INFECTION [None]
